FAERS Safety Report 5118167-9 (Version None)
Quarter: 2006Q4

REPORT INFORMATION
  Report Type: 
  Country: None (occurrence: None)
  Receive Date: 20061002
  Receipt Date: 20060922
  Transmission Date: 20070319
  Serious: Yes (Death, Other)
  Sender: FDA-Public Use
  Company Number: PHBS2006US14777

PATIENT
  Age: 40 Year
  Sex: Female

DRUGS (3)
  1. PAMIDRONATE DISODIUM [Suspect]
     Indication: HYPERCALCAEMIA
     Dosage: 90 MG, UNK
     Route: 042
  2. MAGNESIUM SULFATE [Concomitant]
     Indication: PROPHYLAXIS
     Route: 065
  3. BETAMETHASONE [Concomitant]
     Dosage: 2 DOSES
     Route: 065

REACTIONS (11)
  - BLOOD PRESSURE INCREASED [None]
  - BLOOD URIC ACID INCREASED [None]
  - CAESAREAN SECTION [None]
  - DRUG EXPOSURE DURING PREGNANCY [None]
  - DYSPNOEA [None]
  - MALIGNANT NEOPLASM PROGRESSION [None]
  - NORMAL NEWBORN [None]
  - PLATELET COUNT DECREASED [None]
  - PLEURAL EFFUSION [None]
  - PRE-ECLAMPSIA [None]
  - PROTEINURIA [None]
